FAERS Safety Report 8570713-9 (Version None)
Quarter: 2012Q3

REPORT INFORMATION
  Report Type: 
  Country: None (occurrence: None)
  Receive Date: 20120805
  Receipt Date: 20120620
  Transmission Date: 20120928
  Serious: No
  Sender: FDA-Public Use
  Company Number: US-009507513-2012SP030241

PATIENT

DRUGS (1)
  1. CLARITIN [Suspect]
     Indication: HYPERSENSITIVITY
     Dosage: 20 MG, QD
     Route: 048
     Dates: start: 20120310, end: 20120315

REACTIONS (2)
  - NO THERAPEUTIC RESPONSE [None]
  - OVERDOSE [None]
